FAERS Safety Report 14147814 (Version 1)
Quarter: 2017Q4

REPORT INFORMATION
  Report Type: Spontaneous
  Country: US (occurrence: US)
  Receive Date: 20171031
  Receipt Date: 20171031
  Transmission Date: 20180321
  Serious: Yes (Hospitalization)
  Sender: FDA-Public Use
  Company Number: US-BAUSCH-BL-2017-030281

PATIENT
  Age: 12 Year
  Sex: Male
  Weight: 55.84 kg

DRUGS (1)
  1. XENAZINE [Suspect]
     Active Substance: TETRABENAZINE
     Indication: TOURETTE^S DISORDER
     Route: 065
     Dates: start: 201610

REACTIONS (6)
  - Weight increased [Unknown]
  - Tic [Unknown]
  - Weight decreased [Unknown]
  - Off label use [Unknown]
  - Oral disorder [Unknown]
  - Cellulitis [Unknown]

NARRATIVE: CASE EVENT DATE: 201610
